FAERS Safety Report 17751678 (Version 1)
Quarter: 2020Q2

REPORT INFORMATION
  Report Type: Report from Study
  Country: CN (occurrence: CN)
  Receive Date: 20200506
  Receipt Date: 20200506
  Transmission Date: 20200714
  Serious: Yes (Other)
  Sender: FDA-Public Use
  Company Number: CN-ROCHE-2593461

PATIENT

DRUGS (2)
  1. CAPECITABINE. [Suspect]
     Active Substance: CAPECITABINE
     Indication: RECTAL CANCER
     Route: 048
  2. OXALIPLATIN. [Suspect]
     Active Substance: OXALIPLATIN
     Indication: RECTAL CANCER
     Dosage: DAY 1, DAY 15, DAY 29
     Route: 041

REACTIONS (15)
  - Asthenia [Unknown]
  - Neurotoxicity [Unknown]
  - Neutrophil count decreased [Unknown]
  - Diarrhoea [Unknown]
  - Anaemia [Unknown]
  - White blood cell count decreased [Unknown]
  - Skin reaction [Unknown]
  - Palmar-plantar erythrodysaesthesia syndrome [Unknown]
  - Nausea [Unknown]
  - Vomiting [Unknown]
  - Transaminases increased [Unknown]
  - Platelet count decreased [Unknown]
  - Radiation proctitis [Unknown]
  - Blood bilirubin increased [Unknown]
  - Urinary tract disorder [Unknown]
